FAERS Safety Report 24397347 (Version 1)
Quarter: 2024Q4

REPORT INFORMATION
  Report Type: Spontaneous
  Country: US (occurrence: US)
  Receive Date: 20241004
  Receipt Date: 20241004
  Transmission Date: 20250115
  Serious: No
  Sender: SANOFI AVENTIS
  Company Number: US-SA-2024SA279951

PATIENT
  Age: 56 Year
  Sex: Male

DRUGS (2)
  1. DUPIXENT [Suspect]
     Active Substance: DUPILUMAB
     Indication: Nasal polyps
     Dosage: 300 MG, QOW
     Route: 058
     Dates: start: 20240819, end: 20240902
  2. DUPIXENT [Suspect]
     Active Substance: DUPILUMAB
     Dosage: UNK
     Dates: start: 202409

REACTIONS (5)
  - Memory impairment [Unknown]
  - Nasal polyps [Recovered/Resolved]
  - Condition aggravated [Recovered/Resolved]
  - Rhinorrhoea [Recovered/Resolved]
  - Sinonasal obstruction [Recovered/Resolved]

NARRATIVE: CASE EVENT DATE: 20240901
